FAERS Safety Report 18474241 (Version 3)
Quarter: 2021Q2

REPORT INFORMATION
  Report Type: Spontaneous
  Country: US (occurrence: US)
  Receive Date: 20201106
  Receipt Date: 20210520
  Transmission Date: 20210717
  Serious: Yes (Other)
  Sender: FDA-Public Use
  Company Number: US-PFIZER INC-2020428024

PATIENT
  Age: 47 Year
  Sex: Male

DRUGS (2)
  1. LYRICA [Suspect]
     Active Substance: PREGABALIN
     Indication: HYPOAESTHESIA
     Dosage: 300 MG, 2X/DAY
     Route: 048
  2. LYRICA [Suspect]
     Active Substance: PREGABALIN
     Indication: NEURALGIA
     Dosage: 300 MG, 3X/DAY
     Route: 048

REACTIONS (10)
  - Speech disorder [Unknown]
  - Prescribed overdose [Unknown]
  - Product prescribing error [Unknown]
  - Aphasia [Unknown]
  - Pain [Unknown]
  - Blindness [Unknown]
  - Pain in extremity [Not Recovered/Not Resolved]
  - Clumsiness [Not Recovered/Not Resolved]
  - Vision blurred [Unknown]
  - Reading disorder [Unknown]
